FAERS Safety Report 22239200 (Version 1)
Quarter: 2023Q2

REPORT INFORMATION
  Report Type: Spontaneous
  Country: US (occurrence: US)
  Receive Date: 20230421
  Receipt Date: 20230421
  Transmission Date: 20230721
  Serious: No
  Sender: FDA-Public Use
  Company Number: US-BIOGEN-2021BI01046329

PATIENT
  Sex: Female

DRUGS (19)
  1. VUMERITY [Suspect]
     Active Substance: DIROXIMEL FUMARATE
     Indication: Multiple sclerosis
     Route: 050
  2. VUMERITY [Suspect]
     Active Substance: DIROXIMEL FUMARATE
     Route: 050
     Dates: start: 20210715
  3. VUMERITY [Suspect]
     Active Substance: DIROXIMEL FUMARATE
     Route: 050
     Dates: start: 20210622
  4. GABAPENTIN [Concomitant]
     Active Substance: GABAPENTIN
     Route: 050
  5. BACLOFEN [Concomitant]
     Active Substance: BACLOFEN
     Route: 050
  6. DOXYCYCLINE [Concomitant]
     Active Substance: DOXYCYCLINE
     Route: 050
  7. ACETAMINOPHEN\OXYCODONE HYDROCHLORIDE [Concomitant]
     Active Substance: ACETAMINOPHEN\OXYCODONE HYDROCHLORIDE
     Route: 050
  8. PANTOPRAZOLE SODIUM [Concomitant]
     Active Substance: PANTOPRAZOLE SODIUM
     Route: 050
  9. CYMBALTA [Concomitant]
     Active Substance: DULOXETINE HYDROCHLORIDE
     Route: 050
  10. Amoxicillin/Clavulanate P [Concomitant]
     Route: 050
  11. CALCIUM [Concomitant]
     Active Substance: CALCIUM
     Route: 050
  12. XYZAL [Concomitant]
     Active Substance: LEVOCETIRIZINE DIHYDROCHLORIDE
     Route: 050
  13. VITAMIN D3 [Concomitant]
     Active Substance: CHOLECALCIFEROL
     Route: 050
  14. GINGER [Concomitant]
     Active Substance: GINGER
     Route: 050
  15. HERBALS\TURMERIC [Concomitant]
     Active Substance: HERBALS\TURMERIC
     Route: 050
  16. COENZYME Q10 [Concomitant]
     Active Substance: DIETARY SUPPLEMENT\UBIDECARENONE
     Route: 050
  17. FERROUS FUMARATE\FOLIC ACID\VITAMIN B COMPLEX [Concomitant]
     Active Substance: FERROUS FUMARATE\FOLIC ACID\VITAMIN B COMPLEX
     Route: 050
  18. COUMADIN [Concomitant]
     Active Substance: WARFARIN SODIUM
     Route: 050
  19. WARFARIN SODIUM [Concomitant]
     Active Substance: WARFARIN SODIUM
     Indication: Thrombosis
     Route: 050

REACTIONS (7)
  - Drug ineffective [Unknown]
  - Skin ulcer [Not Recovered/Not Resolved]
  - Anaemia [Unknown]
  - Fatigue [Unknown]
  - Poor peripheral circulation [Unknown]
  - Staphylococcal infection [Unknown]
  - Immunosuppression [Unknown]
